FAERS Safety Report 5804454-5 (Version None)
Quarter: 2008Q3

REPORT INFORMATION
  Report Type: 
  Country: None (occurrence: None)
  Receive Date: 20080709
  Receipt Date: 20080701
  Transmission Date: 20090109
  Serious: Yes (Other)
  Sender: FDA-Public Use
  Company Number: A0726902A

PATIENT
  Age: 49 Year
  Sex: Female

DRUGS (11)
  1. LAMICTAL [Suspect]
     Indication: BIPOLAR DISORDER
     Dosage: 100MG PER DAY
     Route: 048
     Dates: start: 20080301
  2. EFFEXOR XR [Concomitant]
  3. NAPROSYN [Concomitant]
  4. CLONIDINE [Concomitant]
  5. DIOVAN [Concomitant]
  6. HYDROCHLOROTHIAZIDE [Concomitant]
  7. PLAQUENIL [Concomitant]
  8. SYNTHROID [Concomitant]
  9. UNKNOWN MEDICATION [Concomitant]
  10. NEURONTIN [Concomitant]
  11. NIACIN [Concomitant]

REACTIONS (7)
  - HEPATIC ENZYME INCREASED [None]
  - IMMUNE SYSTEM DISORDER [None]
  - LIVER INJURY [None]
  - MALAISE [None]
  - RASH [None]
  - RASH PRURITIC [None]
  - SCAB [None]
